FAERS Safety Report 16052998 (Version 1)
Quarter: 2019Q1

REPORT INFORMATION
  Report Type: Spontaneous
  Country: US (occurrence: US)
  Receive Date: 20190308
  Receipt Date: 20190308
  Transmission Date: 20190418
  Serious: No
  Sender: FDA-Public Use
  Company Number: US-BAYER-2019-043844

PATIENT
  Age: 61 Year
  Sex: Male

DRUGS (22)
  1. XTANDI [Suspect]
     Active Substance: ENZALUTAMIDE
     Indication: PROSTATE CANCER METASTATIC
     Dosage: 40 MG
     Dates: start: 20170128
  2. XGEVA [Concomitant]
     Active Substance: DENOSUMAB
  3. CBD OIL [Concomitant]
     Active Substance: CANNABIDIOL\HERBALS
     Indication: DIARRHOEA
     Dosage: UNK
  4. TRIAMCINOLONE [Concomitant]
     Active Substance: TRIAMCINOLONE
     Indication: PSORIASIS
     Dosage: 0.1%
  5. FLEXERIL [CEFIXIME] [Concomitant]
     Active Substance: CEFIXIME
     Dosage: 5 MG
  6. PROVIGIL [Concomitant]
     Active Substance: MODAFINIL
     Dosage: 100 MG
  7. REMERON [Concomitant]
     Active Substance: MIRTAZAPINE
     Dosage: 15 MG
  8. KEYTRUDA [Suspect]
     Active Substance: PEMBROLIZUMAB
     Dosage: UNK
     Dates: start: 20170906
  9. ELIGARD [Concomitant]
     Active Substance: LEUPROLIDE ACETATE
     Dosage: 45 MG
  10. MEGESTROL [Concomitant]
     Active Substance: MEGESTROL
     Dosage: 400MG/10ML
  11. MVI [VITAMINS NOS] [Concomitant]
  12. LEVOTHYROXINE. [Concomitant]
     Active Substance: LEVOTHYROXINE
     Indication: FATIGUE
     Dosage: 75 MCG
  13. LOMOTIL [LOPERAMIDE HYDROCHLORIDE] [Concomitant]
     Indication: DIARRHOEA
  14. PRILOSEC [Concomitant]
     Active Substance: OMEPRAZOLE MAGNESIUM
     Dosage: 20 MG
  15. PROTEIN [Concomitant]
     Active Substance: PROTEIN
  16. PROVENGE [Concomitant]
     Active Substance: SIPULEUCEL-T
  17. TACROLIMUS. [Concomitant]
     Active Substance: TACROLIMUS
     Indication: PSORIASIS
     Dosage: 0.1%
  18. XOFIGO [Suspect]
     Active Substance: RADIUM RA-223 DICHLORIDE
     Dosage: UNK
     Dates: start: 201801, end: 201806
  19. LORAZEPAM. [Concomitant]
     Active Substance: LORAZEPAM
     Dosage: 1 MG
  20. PREDNISONE. [Concomitant]
     Active Substance: PREDNISONE
     Dosage: 10 MG
  21. WELLBUTRIN [Concomitant]
     Active Substance: BUPROPION HYDROCHLORIDE
     Dosage: 150 MG
  22. LEVOTHYROXINE. [Concomitant]
     Active Substance: LEVOTHYROXINE
     Indication: HYPOTHYROIDISM
     Dosage: 100 MCG

REACTIONS (1)
  - Dyspnoea [None]

NARRATIVE: CASE EVENT DATE: 2018
